FAERS Safety Report 6391565-1 (Version None)
Quarter: 2009Q4

REPORT INFORMATION
  Report Type: 
  Country: None (occurrence: None)
  Receive Date: 20091007
  Receipt Date: 20090928
  Transmission Date: 20100525
  Serious: Yes (Other)
  Sender: FDA-Public Use
  Company Number: US-JNJFOC-20060400445

PATIENT
  Sex: Female
  Weight: 149.69 kg

DRUGS (2)
  1. RISPERDAL [Suspect]
     Indication: ANTIDEPRESSANT THERAPY
     Route: 065
  2. ZYPREXA [Suspect]
     Indication: DEPRESSION
     Route: 065

REACTIONS (8)
  - DIABETES MELLITUS [None]
  - HYPERSENSITIVITY [None]
  - LIP SWELLING [None]
  - OEDEMA PERIPHERAL [None]
  - PANCREATITIS [None]
  - PRURITUS [None]
  - RASH [None]
  - SEDATION [None]
